FAERS Safety Report 6985660-3 (Version None)
Quarter: 2010Q3

REPORT INFORMATION
  Report Type: 
  Country: None (occurrence: None)
  Receive Date: 20100915
  Receipt Date: 20100913
  Transmission Date: 20110219
  Serious: Yes (Other)
  Sender: FDA-Public Use
  Company Number: US-JNJFOC-20100800409

PATIENT
  Sex: Female
  Weight: 54.43 kg

DRUGS (4)
  1. NUCYNTA [Suspect]
     Indication: ARTHRALGIA
     Dosage: 5 IN ONE DAY
     Route: 048
  2. OXYCODONE [Concomitant]
     Indication: PRODUCT USED FOR UNKNOWN INDICATION
     Route: 065
  3. LORAZEPAM [Concomitant]
     Indication: PRODUCT USED FOR UNKNOWN INDICATION
     Route: 065
  4. GABAPENTIN [Concomitant]
     Indication: PRODUCT USED FOR UNKNOWN INDICATION
     Route: 065

REACTIONS (5)
  - CONFUSIONAL STATE [None]
  - DYSPHAGIA [None]
  - DYSPHONIA [None]
  - DYSPNOEA [None]
  - URTICARIA [None]
